FAERS Safety Report 17612186 (Version 4)
Quarter: 2020Q2

REPORT INFORMATION
  Report Type: Spontaneous
  Country: IL (occurrence: IL)
  Receive Date: 20200401
  Receipt Date: 20200523
  Transmission Date: 20200713
  Serious: Yes (Hospitalization)
  Sender: FDA-Public Use
  Company Number: IL-UCBSA-2020008083

PATIENT
  Age: 9 Year
  Sex: Female
  Weight: 22 kg

DRUGS (5)
  1. EPIDIOLEX [Concomitant]
     Active Substance: CANNABIDIOL
     Dosage: 140MG
  2. DEPALEPT [Concomitant]
     Active Substance: VALPROIC ACID
     Indication: PRODUCT USED FOR UNKNOWN INDICATION
     Dosage: UNK
  3. BRIVARACETAM [Suspect]
     Active Substance: BRIVARACETAM
     Indication: SEVERE MYOCLONIC EPILEPSY OF INFANCY
     Dosage: UNK
  4. EPIDIOLEX [Concomitant]
     Active Substance: CANNABIDIOL
     Indication: SEVERE MYOCLONIC EPILEPSY OF INFANCY
     Dosage: 200MG
  5. BRIVARACETAM [Suspect]
     Active Substance: BRIVARACETAM
     Indication: OFF LABEL USE
     Dosage: 25 MG AM AND 50 MG PM

REACTIONS (6)
  - Drug ineffective [Unknown]
  - Asthenia [Unknown]
  - Off label use [Unknown]
  - Decreased appetite [Recovering/Resolving]
  - Fatigue [Recovering/Resolving]
  - Seizure [Unknown]
